FAERS Safety Report 11092165 (Version 1)
Quarter: 2015Q2

REPORT INFORMATION
  Report Type: Spontaneous
  Country: FR (occurrence: FR)
  Receive Date: 20150505
  Receipt Date: 20150505
  Transmission Date: 20150821
  Serious: Yes (Hospitalization)
  Sender: FDA-Public Use
  Company Number: FR-ABBVIE-15K-056-1382958-00

PATIENT
  Age: 32 Year
  Sex: Female

DRUGS (2)
  1. HUMIRA [Suspect]
     Active Substance: ADALIMUMAB
     Indication: PSORIASIS
  2. HUMIRA [Suspect]
     Active Substance: ADALIMUMAB
     Indication: PSORIATIC ARTHROPATHY
     Route: 058
     Dates: start: 20150209, end: 20150223

REACTIONS (6)
  - Rash papular [Recovered/Resolved]
  - Paraesthesia [Unknown]
  - Perivascular dermatitis [Unknown]
  - Injection site erythema [Unknown]
  - Injection site paraesthesia [Unknown]
  - Purpura [Recovered/Resolved]

NARRATIVE: CASE EVENT DATE: 2015
